FAERS Safety Report 5653413-4 (Version None)
Quarter: 2008Q1

REPORT INFORMATION
  Report Type: 
  Country: None (occurrence: None)
  Receive Date: 20080306
  Receipt Date: 20080304
  Transmission Date: 20080703
  Serious: Yes (Hospitalization)
  Sender: FDA-Public Use
  Company Number: A0713859A

PATIENT
  Age: 63 Year
  Sex: Female
  Weight: 78.2 kg

DRUGS (2)
  1. LAPATINIB [Suspect]
     Dosage: 1500MG PER DAY
     Route: 048
     Dates: start: 20080205
  2. GEMCITABINE [Suspect]
     Dosage: 1780MG WEEKLY
     Route: 042
     Dates: start: 20080205

REACTIONS (6)
  - DEHYDRATION [None]
  - ERYTHEMA [None]
  - OEDEMA PERIPHERAL [None]
  - PAIN IN EXTREMITY [None]
  - PYREXIA [None]
  - SKIN INFECTION [None]
